FAERS Safety Report 5319245-1 (Version None)
Quarter: 2007Q1

REPORT INFORMATION
  Report Type: 
  Country: None (occurrence: None)
  Receive Date: 20070202
  Receipt Date: 20060823
  Transmission Date: 20070707
  Serious: Yes (Life-Threatening)
  Sender: FDA-Public Use
  Company Number: 256325

PATIENT
  Age: 47 Year
  Sex: Male
  Weight: 83.9 kg

DRUGS (2)
  1. NOVOLOG [Suspect]
     Indication: INSULIN-REQUIRING TYPE II DIABETES MELLITUS
     Dosage: 15-17 UI, QD, SUBCUTANEOUS
     Route: 058
     Dates: start: 20010101
  2. LEVEMIR [Suspect]
     Indication: INSULIN-REQUIRING TYPE II DIABETES MELLITUS
     Dosage: SUBCUTANEOUS
     Route: 058

REACTIONS (2)
  - HYPOGLYCAEMIC COMA [None]
  - WRONG DRUG ADMINISTERED [None]
